FAERS Safety Report 6976041-7 (Version None)
Quarter: 2010Q3

REPORT INFORMATION
  Report Type: 
  Country: None (occurrence: None)
  Receive Date: 20100910
  Receipt Date: 20100830
  Transmission Date: 20110219
  Serious: Yes (Other)
  Sender: FDA-Public Use
  Company Number: JP-PFIZER INC-2010108607

PATIENT

DRUGS (1)
  1. LYRICA [Suspect]
     Dosage: 150 MG, DAILY
     Route: 048

REACTIONS (2)
  - FALL [None]
  - FRACTURE [None]
